FAERS Safety Report 6932285-1 (Version None)
Quarter: 2010Q3

REPORT INFORMATION
  Report Type: 
  Country: None (occurrence: None)
  Receive Date: 20100812
  Receipt Date: 20090418
  Transmission Date: 20110219
  Serious: No
  Sender: FDA-Public Use
  Company Number: 2009-01082

PATIENT
  Age: 21 Year
  Sex: Female
  Weight: 45.3597 kg

DRUGS (2)
  1. ZICAM EXTREME CONGESTION RELIEF [Suspect]
     Dosage: TID X 6 DAYS
     Dates: start: 20090413, end: 20090419
  2. CELEXA [Concomitant]

REACTIONS (1)
  - ANOSMIA [None]
